FAERS Safety Report 11983923 (Version 3)
Quarter: 2016Q3

REPORT INFORMATION
  Report Type: Report from Study
  Country: US (occurrence: US)
  Receive Date: 20160201
  Receipt Date: 20160714
  Transmission Date: 20161109
  Serious: Yes (Hospitalization)
  Sender: FDA-Public Use
  Company Number: US-VERTEX PHARMACEUTICALS-2016-000468

PATIENT
  Age: 44 Year
  Sex: Male

DRUGS (10)
  1. HYPERSAL [Concomitant]
  2. PANCREAZE [Concomitant]
     Active Substance: PANCRELIPASE AMYLASE\PANCRELIPASE LIPASE\PANCRELIPASE PROTEASE
  3. PULMOZYME [Concomitant]
     Active Substance: DORNASE ALFA
  4. ACTIGALL [Concomitant]
     Active Substance: URSODIOL
  5. KALYDECO [Suspect]
     Active Substance: IVACAFTOR
     Indication: CYSTIC FIBROSIS
     Dosage: 150 MG, BID
     Route: 048
     Dates: start: 20120330
  6. KALYDECO [Suspect]
     Active Substance: IVACAFTOR
     Dosage: 150 MG, BID
     Route: 048
     Dates: start: 20160427
  7. LANTUS [Concomitant]
     Active Substance: INSULIN GLARGINE
  8. CENTRUM [Concomitant]
     Active Substance: VITAMINS
  9. HUMALOG [Concomitant]
     Active Substance: INSULIN LISPRO
  10. TOBI [Concomitant]
     Active Substance: TOBRAMYCIN

REACTIONS (2)
  - Upper limb fracture [Not Recovered/Not Resolved]
  - Pulmonary function test decreased [Unknown]

NARRATIVE: CASE EVENT DATE: 20160425
